FAERS Safety Report 7227353-3 (Version None)
Quarter: 2011Q1

REPORT INFORMATION
  Report Type: 
  Country: None (occurrence: None)
  Receive Date: 20110114
  Receipt Date: 20100625
  Transmission Date: 20110831
  Serious: Yes (Death)
  Sender: FDA-Public Use
  Company Number: PHHY2010US86219

PATIENT
  Age: 73 Year
  Sex: Male

DRUGS (1)
  1. TOBI [Suspect]
     Indication: MYELODYSPLASTIC SYNDROME
     Dosage: 300 MG ^1 VIAL BID^ 28 DAYS ON 28 DAYS OFF
     Dates: start: 20090707, end: 20100620

REACTIONS (1)
  - DEATH [None]
